FAERS Safety Report 5897774-X (Version None)
Quarter: 2008Q3

REPORT INFORMATION
  Report Type: 
  Country: None (occurrence: None)
  Receive Date: 20080924
  Receipt Date: 20080924
  Transmission Date: 20090109
  Serious: Yes (Life-Threatening, Hospitalization)
  Sender: FDA-Public Use
  Company Number: None

PATIENT
  Age: 21 Year
  Sex: Male
  Weight: 72.5755 kg

DRUGS (1)
  1. PROPECIA [Suspect]
     Indication: ALOPECIA
     Dosage: 1 MG 1 X DAY PO
     Route: 048

REACTIONS (6)
  - CHEST PAIN [None]
  - DEPRESSION [None]
  - ERECTILE DYSFUNCTION [None]
  - FAT REDISTRIBUTION [None]
  - GYNAECOMASTIA [None]
  - TESTICULAR PAIN [None]
